FAERS Safety Report 8378192-1 (Version None)
Quarter: 2012Q2

REPORT INFORMATION
  Report Type: 
  Country: None (occurrence: None)
  Receive Date: 20120522
  Receipt Date: 20120516
  Transmission Date: 20120825
  Serious: No
  Sender: FDA-Public Use
  Company Number: US-PFIZER INC-2010128924

PATIENT
  Sex: Female
  Weight: 65.76 kg

DRUGS (2)
  1. AZOPT [Concomitant]
     Dosage: UNK
     Route: 031
  2. XALATAN [Suspect]
     Indication: GLAUCOMA
     Dosage: 1 GTT, 1 DROP IN EACH EYE DAILY
     Route: 031
     Dates: start: 20050101, end: 20080101

REACTIONS (2)
  - EYE DISORDER [None]
  - IRIS HYPERPIGMENTATION [None]
